FAERS Safety Report 8471617 (Version 4)
Quarter: 2017Q1

REPORT INFORMATION
  Report Type: Spontaneous
  Country: US (occurrence: US)
  Receive Date: 20120322
  Receipt Date: 20170221
  Transmission Date: 20170429
  Serious: Yes (Hospitalization, Other)
  Sender: FDA-Public Use
  Company Number: US-PFIZER INC-2012071702

PATIENT
  Age: 77 Year
  Sex: Female
  Weight: 65.76 kg

DRUGS (8)
  1. ADVIL [Suspect]
     Active Substance: IBUPROFEN
     Indication: ARTHRALGIA
  2. CELEBREX [Suspect]
     Active Substance: CELECOXIB
     Indication: ARTHRITIS
     Dosage: 200 MG, UNK
     Route: 048
     Dates: start: 201202
  3. CARDIZEM [Concomitant]
     Active Substance: DILTIAZEM HYDROCHLORIDE
     Indication: HYPERTENSION
     Dosage: UNK, 1X/DAY
  4. ATENOLOL. [Concomitant]
     Active Substance: ATENOLOL
     Indication: HYPERTENSION
     Dosage: 25 MG, 1X/DAY
  5. ADVIL [Suspect]
     Active Substance: IBUPROFEN
     Indication: ARTHRITIS
     Dosage: UNK, AS NEEDED
     Route: 048
     Dates: end: 201111
  6. CELEBREX [Suspect]
     Active Substance: CELECOXIB
     Dosage: 200 MG, 1X/DAY
     Route: 048
     Dates: end: 201605
  7. CELEBREX [Suspect]
     Active Substance: CELECOXIB
     Dosage: 200 MG, 1X/DAY
     Route: 048
  8. CELEBREX [Suspect]
     Active Substance: CELECOXIB
     Dosage: UNK, ALTERNATE DAY (EVERY OTHER DAY)
     Route: 048
     Dates: start: 201301

REACTIONS (8)
  - Gastric ulcer [Recovered/Resolved]
  - Musculoskeletal disorder [Recovered/Resolved]
  - Product use issue [Recovered/Resolved]
  - Hypokinesia [Unknown]
  - Pain [Unknown]
  - Activities of daily living impaired [Unknown]
  - Renal injury [Not Recovered/Not Resolved]
  - Hypersensitivity [Unknown]

NARRATIVE: CASE EVENT DATE: 201111
